FAERS Safety Report 12569940 (Version 2)
Quarter: 2016Q3

REPORT INFORMATION
  Report Type: Spontaneous
  Country: US (occurrence: US)
  Receive Date: 20160719
  Receipt Date: 20160721
  Transmission Date: 20161109
  Serious: Yes (Hospitalization)
  Sender: FDA-Public Use
  Company Number: US-RARE DISEASE THERAPEUTICS, INC.-1055232

PATIENT
  Age: 36 Year
  Sex: Male
  Weight: 102.9 kg

DRUGS (11)
  1. CYSTADANE [Suspect]
     Active Substance: BETAINE
     Route: 048
     Dates: start: 20140818
  2. OLANZAPINE. [Concomitant]
     Active Substance: OLANZAPINE
  3. TOPAMAX [Concomitant]
     Active Substance: TOPIRAMATE
  4. FOLIC ACID. [Concomitant]
     Active Substance: FOLIC ACID
  5. VITAMIN B6 [Concomitant]
     Active Substance: PYRIDOXINE HYDROCHLORIDE
  6. MULTIVITAMIN [Concomitant]
     Active Substance: VITAMINS
  7. CYSTADANE [Suspect]
     Active Substance: BETAINE
     Indication: HOMOCYSTINURIA
     Dates: start: 1996
  8. LEXAPRO [Concomitant]
     Active Substance: ESCITALOPRAM OXALATE
  9. RISPERDAL [Concomitant]
     Active Substance: RISPERIDONE
  10. LORAZEPAM. [Concomitant]
     Active Substance: LORAZEPAM
  11. CLARITIN [Concomitant]
     Active Substance: LORATADINE

REACTIONS (2)
  - Underdose [None]
  - Depression [Recovered/Resolved]

NARRATIVE: CASE EVENT DATE: 20160531
